FAERS Safety Report 7564447-7 (Version None)
Quarter: 2011Q2

REPORT INFORMATION
  Report Type: 
  Country: None (occurrence: None)
  Receive Date: 20110622
  Receipt Date: 20110616
  Transmission Date: 20111010
  Serious: Yes (Life-Threatening, Hospitalization, Other)
  Sender: FDA-Public Use
  Company Number: PHHY2011FR49147

PATIENT
  Age: 48 Year
  Sex: Female

DRUGS (2)
  1. ILARIS [Suspect]
     Indication: STILL'S DISEASE ADULT ONSET
     Dosage: 150 MG, UNK
     Dates: start: 20110215
  2. ILARIS [Suspect]
     Dates: start: 20110412

REACTIONS (13)
  - TRANSAMINASES INCREASED [None]
  - HYPERCREATININAEMIA [None]
  - RENAL FAILURE [None]
  - SERUM FERRITIN INCREASED [None]
  - PYREXIA [None]
  - MUSCULOSKELETAL PAIN [None]
  - ABDOMINAL PAIN UPPER [None]
  - HISTIOCYTOSIS HAEMATOPHAGIC [None]
  - CONVULSION [None]
  - CONFUSIONAL STATE [None]
  - ODYNOPHAGIA [None]
  - RHEUMATOID ARTHRITIS [None]
  - ARTHRALGIA [None]
